FAERS Safety Report 6094446-6 (Version None)
Quarter: 2009Q1

REPORT INFORMATION
  Report Type: 
  Country: None (occurrence: None)
  Receive Date: 20090226
  Receipt Date: 20090219
  Transmission Date: 20090719
  Serious: Yes (Other)
  Sender: FDA-Public Use
  Company Number: GB-ABBOTT-09P-167-0502897-00

PATIENT
  Sex: Female
  Weight: 91 kg

DRUGS (1)
  1. REDUCTIL [Suspect]
     Indication: WEIGHT CONTROL
     Dates: start: 20081016, end: 20081127

REACTIONS (5)
  - ELECTROCARDIOGRAM ABNORMAL [None]
  - HEART RATE ABNORMAL [None]
  - HYPOAESTHESIA [None]
  - PALPITATIONS [None]
  - PARAESTHESIA [None]
